FAERS Safety Report 19791521 (Version 1)
Quarter: 2021Q3

REPORT INFORMATION
  Report Type: Spontaneous
  Country: US (occurrence: US)
  Receive Date: 20210906
  Receipt Date: 20210906
  Transmission Date: 20211014
  Serious: Yes (Hospitalization, Other)
  Sender: FDA-Public Use
  Company Number: US-STRIDES ARCOLAB LIMITED-2021SP027088

PATIENT
  Age: 17 Year
  Sex: Female

DRUGS (25)
  1. RITUXIMAB. [Suspect]
     Active Substance: RITUXIMAB
     Dosage: UNK, TWO CYCLES OF R?CYVE REGIMEN
     Route: 065
  2. CARBOPLATIN. [Suspect]
     Active Substance: CARBOPLATIN
     Indication: LYMPHOPROLIFERATIVE DISORDER
     Dosage: UNK, TWO CYCLES OF O?ICE REGIMEN
     Route: 065
  3. PREDNISOLONE. [Suspect]
     Active Substance: PREDNISOLONE
     Dosage: UNK
     Route: 065
  4. CYCLOPHOSPHAMIDE. [Suspect]
     Active Substance: CYCLOPHOSPHAMIDE
     Indication: LYMPHOPROLIFERATIVE DISORDER
     Dosage: UNK, TWO CYCLES OF R?COP REGIMEN
     Route: 065
  5. KETAMINE [Concomitant]
     Active Substance: KETAMINE
     Indication: HEADACHE
     Dosage: UNK, DRIP
     Route: 065
  6. METHOTREXATE. [Suspect]
     Active Substance: METHOTREXATE
     Indication: LYMPHOPROLIFERATIVE DISORDER
     Dosage: UNK, HIGH DOSE (TWO CYCLES OF R?COPADM REGIMEN)
     Route: 065
  7. VINCRISTINE [Suspect]
     Active Substance: VINCRISTINE
     Indication: LYMPHOPROLIFERATIVE DISORDER
     Dosage: UNK, TWO CYCLES OF R?COP REGIMEN
     Route: 065
  8. IFOSFAMIDE. [Suspect]
     Active Substance: IFOSFAMIDE
     Indication: LYMPHOPROLIFERATIVE DISORDER
     Dosage: UNK, TWO CYCLES OF O?ICE REGIMEN
     Route: 065
  9. PREDNISOLONE. [Suspect]
     Active Substance: PREDNISOLONE
     Indication: LYMPHOPROLIFERATIVE DISORDER
     Dosage: UNK (MAINTENANCE IMMUNOSUPPRESSION)
     Route: 065
  10. PREDNISOLONE. [Suspect]
     Active Substance: PREDNISOLONE
     Dosage: UNK, TWO CYCLES OF R?COPADM REGIMEN
     Route: 065
  11. ETOPOSIDE. [Suspect]
     Active Substance: ETOPOSIDE
     Dosage: UNK, TWO CYCLES OF O?ICE REGIMEN
     Route: 065
  12. RITUXIMAB. [Suspect]
     Active Substance: RITUXIMAB
     Indication: LYMPHOPROLIFERATIVE DISORDER
     Dosage: UNK, TWO CYCLES OF R?COP REGIMEN
     Route: 065
  13. RITUXIMAB. [Suspect]
     Active Substance: RITUXIMAB
     Dosage: UNK, TWO CYCLES OF R?COPADM REGIMEN
     Route: 065
  14. CYTARABINE. [Suspect]
     Active Substance: CYTARABINE
     Indication: LYMPHOPROLIFERATIVE DISORDER
     Dosage: UNK, TWO CYCLES OF R?CYVE REGIMEN
     Route: 065
  15. OBINUTUZUMAB. [Suspect]
     Active Substance: OBINUTUZUMAB
     Indication: LYMPHOPROLIFERATIVE DISORDER
     Dosage: UNK, TWO CYCLES OF O?ICE REGIMEN
     Route: 065
  16. PREDNISOLONE. [Suspect]
     Active Substance: PREDNISOLONE
     Indication: HEART TRANSPLANT
     Dosage: UNK, TWO CYCLES OF R?COP REGIMEN
     Route: 065
  17. DOXORUBICIN [Suspect]
     Active Substance: DOXORUBICIN
     Indication: LYMPHOPROLIFERATIVE DISORDER
     Dosage: UNK, TWO CYCLES OF R?COPADM REGIMEN
     Route: 065
  18. ETOPOSIDE. [Suspect]
     Active Substance: ETOPOSIDE
     Indication: LYMPHOPROLIFERATIVE DISORDER
     Dosage: UNK, TWO CYCLES OF R?CYVE REGIMEN
     Route: 065
  19. TACROLIMUS. [Concomitant]
     Active Substance: TACROLIMUS
     Indication: HEART TRANSPLANT
     Dosage: UNK
     Route: 065
  20. TACROLIMUS. [Concomitant]
     Active Substance: TACROLIMUS
     Dosage: UNK (GOAL TACROLIMUS LEVELS WERE DECREASED)
     Route: 065
  21. MYCOPHENOLATE MOFETIL. [Concomitant]
     Active Substance: MYCOPHENOLATE MOFETIL
     Indication: LYMPHOPROLIFERATIVE DISORDER
     Dosage: UNK
     Route: 065
  22. CYCLOPHOSPHAMIDE. [Suspect]
     Active Substance: CYCLOPHOSPHAMIDE
     Dosage: UNK, TWO CYCLES OF R?COPADM REGIMEN
     Route: 065
  23. VINCRISTINE [Suspect]
     Active Substance: VINCRISTINE
     Dosage: UNK, TWO CYCLES OF R?COPADM REGIMEN
     Route: 065
  24. TACROLIMUS. [Concomitant]
     Active Substance: TACROLIMUS
     Dosage: UNK
     Route: 065
  25. VERAPAMIL [Concomitant]
     Active Substance: VERAPAMIL HYDROCHLORIDE
     Indication: HEADACHE
     Dosage: UNK
     Route: 065

REACTIONS (4)
  - Off label use [Unknown]
  - Pancytopenia [Unknown]
  - Drug ineffective [Unknown]
  - Drug intolerance [Unknown]
